FAERS Safety Report 13682996 (Version 1)
Quarter: 2017Q2

REPORT INFORMATION
  Report Type: Spontaneous
  Country: US (occurrence: US)
  Receive Date: 20170623
  Receipt Date: 20170623
  Transmission Date: 20170830
  Serious: No
  Sender: FDA-Public Use
  Company Number: US-MALLINCKRODT-T201701872

PATIENT
  Sex: Female

DRUGS (1)
  1. H.P. ACTHAR [Suspect]
     Active Substance: CORTICOTROPIN
     Indication: MULTIPLE SCLEROSIS
     Dosage: 80 UNITS, ONCE DAILY FOR 5 DAYS
     Route: 030

REACTIONS (5)
  - Weight increased [Unknown]
  - Headache [Unknown]
  - Fluid retention [Unknown]
  - Eye disorder [Unknown]
  - Injection site bruising [Recovering/Resolving]
